FAERS Safety Report 7929725-8 (Version None)
Quarter: 2011Q4

REPORT INFORMATION
  Report Type: 
  Country: None (occurrence: None)
  Receive Date: 20111121
  Receipt Date: 20111115
  Transmission Date: 20120403
  Serious: Yes (Other)
  Sender: FDA-Public Use
  Company Number: US-JNJFOC-20111106903

PATIENT
  Sex: Male
  Weight: 79.83 kg

DRUGS (4)
  1. ANTI-ANXIETY [Concomitant]
     Indication: ANXIETY
     Route: 065
  2. TYLENOL WARMING COUGH + SEVERE CONGESTION DAYTIME HONEY LEMON [Suspect]
     Indication: NASAL CONGESTION
     Dosage: 1 TABLESPOON
     Route: 048
     Dates: start: 20111111, end: 20111115
  3. TYLENOL WARMING COUGH + SEVERE CONGESTION DAYTIME HONEY LEMON [Suspect]
     Indication: OROPHARYNGEAL PAIN
     Dosage: 1 TABLESPOON
     Route: 048
     Dates: start: 20111111, end: 20111115
  4. TYLENOL WARMING COUGH + SEVERE CONGESTION DAYTIME HONEY LEMON [Suspect]
     Indication: COUGH
     Dosage: 1 TABLESPOON
     Route: 048
     Dates: start: 20111111, end: 20111115

REACTIONS (5)
  - HALLUCINATION [None]
  - ANXIETY [None]
  - DIZZINESS [None]
  - FEELING ABNORMAL [None]
  - SOMNOLENCE [None]
